FAERS Safety Report 5103783-0 (Version None)
Quarter: 2006Q3

REPORT INFORMATION
  Report Type: 
  Country: None (occurrence: None)
  Receive Date: 20060913
  Receipt Date: 20060901
  Transmission Date: 20061208
  Serious: Yes (Hospitalization)
  Sender: FDA-Public Use
  Company Number: ZA-BRISTOL-MYERS SQUIBB COMPANY-13495346

PATIENT
  Age: 66 Year
  Sex: Male

DRUGS (7)
  1. CISPLATIN [Suspect]
     Indication: GASTRIC CANCER
     Route: 041
     Dates: start: 20060816, end: 20060816
  2. FLUOROURACIL [Suspect]
     Indication: GASTRIC CANCER
     Route: 041
     Dates: start: 20060816, end: 20060822
  3. NORVASC [Concomitant]
     Indication: HYPERTENSION
     Route: 048
     Dates: start: 20050101
  4. COVERSYL PLUS [Concomitant]
     Indication: HYPERTENSION
     Route: 048
     Dates: start: 20050101
  5. LAXETTE [Concomitant]
     Indication: CONSTIPATION
     Route: 048
     Dates: start: 20060807
  6. DORMONOCT [Concomitant]
     Indication: INSOMNIA
     Route: 048
     Dates: start: 20060807
  7. FERRIMED [Concomitant]
     Indication: ANAEMIA
     Route: 048
     Dates: start: 20060601

REACTIONS (2)
  - FATIGUE [None]
  - STOMATITIS [None]
